FAERS Safety Report 8266651-1 (Version None)
Quarter: 2012Q2

REPORT INFORMATION
  Report Type: 
  Country: None (occurrence: None)
  Receive Date: 20120407
  Receipt Date: 20120328
  Transmission Date: 20120825
  Serious: Yes (Hospitalization)
  Sender: FDA-Public Use
  Company Number: US-ASTRAZENECA-2012SE20758

PATIENT
  Sex: Female

DRUGS (1)
  1. ZOLADEX [Suspect]
     Indication: BREAST CANCER METASTATIC
     Route: 058

REACTIONS (2)
  - PAIN [None]
  - WRONG TECHNIQUE IN DRUG USAGE PROCESS [None]
